FAERS Safety Report 10599615 (Version 1)
Quarter: 2014Q4

REPORT INFORMATION
  Report Type: Spontaneous
  Country: CA (occurrence: CA)
  Receive Date: 20141121
  Receipt Date: 20141121
  Transmission Date: 20150529
  Serious: Yes (Life-Threatening)
  Sender: FDA-Public Use
  Company Number: CA-B.I. PHARMACEUTICALS,INC./RIDGEFIELD-2014-BI-56002CN

PATIENT
  Age: 78 Year
  Sex: Male
  Weight: 84 kg

DRUGS (5)
  1. METFORMIN [Concomitant]
     Active Substance: METFORMIN HYDROCHLORIDE
     Indication: PRODUCT USED FOR UNKNOWN INDICATION
     Dosage: 1000 MG
     Route: 048
  2. SEPTRA DS [Concomitant]
     Active Substance: SULFAMETHOXAZOLE\TRIMETHOPRIM
     Indication: PRODUCT USED FOR UNKNOWN INDICATION
     Dosage: 1000 MG
     Route: 048
  3. COTRIMOXAZOLE [Concomitant]
     Active Substance: SULFAMETHOXAZOLE\TRIMETHOPRIM
     Indication: PRODUCT USED FOR UNKNOWN INDICATION
     Route: 065
  4. SEREVENT [Suspect]
     Active Substance: SALMETEROL XINAFOATE
     Indication: PRODUCT USED FOR UNKNOWN INDICATION
     Dosage: 12 ANZ
     Route: 055
  5. COMBIVENT [Suspect]
     Active Substance: ALBUTEROL SULFATE\IPRATROPIUM BROMIDE
     Indication: PRODUCT USED FOR UNKNOWN INDICATION
     Dosage: 16 ANZ
     Route: 055

REACTIONS (15)
  - Blood creatine phosphokinase increased [Unknown]
  - Hyperhidrosis [Unknown]
  - Hypocalcaemia [Unknown]
  - Angina pectoris [Unknown]
  - Chest pain [Unknown]
  - Dyspnoea [Unknown]
  - Lung infiltration [Unknown]
  - Pneumonia [Unknown]
  - Hypomagnesaemia [Unknown]
  - Hyperglycaemia [Unknown]
  - Tachycardia [Unknown]
  - Myocardial infarction [Unknown]
  - Cerebrovascular accident [Unknown]
  - Hyperphosphataemia [Unknown]
  - Deep vein thrombosis [Unknown]
